FAERS Safety Report 8196311-7 (Version None)
Quarter: 2012Q1

REPORT INFORMATION
  Report Type: 
  Country: None (occurrence: None)
  Receive Date: 20120309
  Receipt Date: 20120306
  Transmission Date: 20120608
  Serious: No
  Sender: FDA-Public Use
  Company Number: US-PFIZER INC-2012059995

PATIENT
  Sex: Female
  Weight: 81.633 kg

DRUGS (3)
  1. GABAPENTIN [Suspect]
     Indication: SCIATICA
     Dosage: 100 MG, AS NEEDED
  2. LYRICA [Suspect]
     Indication: SCIATICA
     Dosage: UNK
  3. GABAPENTIN [Suspect]
     Dosage: 300 MG, AS NEEDED

REACTIONS (4)
  - INJURY [None]
  - DRUG INEFFECTIVE [None]
  - RASH [None]
  - MYOFASCIAL PAIN SYNDROME [None]
